FAERS Safety Report 5833710-X (Version None)
Quarter: 2008Q3

REPORT INFORMATION
  Report Type: 
  Country: None (occurrence: None)
  Receive Date: 20080805
  Receipt Date: 20080728
  Transmission Date: 20090109
  Serious: Yes (Hospitalization)
  Sender: FDA-Public Use
  Company Number: US-ASTRAZENECA-2006UW26179

PATIENT
  Age: 14312 Day
  Sex: Female
  Weight: 99.8 kg

DRUGS (5)
  1. SEROQUEL [Suspect]
     Indication: SLEEP DISORDER
     Dosage: 25MG - 100 MG
     Route: 048
     Dates: start: 20020323, end: 20060214
  2. SEROQUEL [Suspect]
     Indication: SCHIZOPHRENIA
     Dosage: 25MG - 100 MG
     Route: 048
     Dates: start: 20020323, end: 20060214
  3. SEROQUEL [Suspect]
     Indication: BIPOLAR DISORDER
     Dosage: 25MG - 100 MG
     Route: 048
     Dates: start: 20020323, end: 20060214
  4. SEROQUEL [Suspect]
     Indication: DEPRESSION
     Dosage: 25MG - 100 MG
     Route: 048
     Dates: start: 20020323, end: 20060214
  5. HALDOL [Concomitant]
     Dates: start: 19971101

REACTIONS (4)
  - DIABETES MELLITUS [None]
  - GESTATIONAL DIABETES [None]
  - HEPATIC ENZYME ABNORMAL [None]
  - STAPHYLOCOCCAL INFECTION [None]
